FAERS Safety Report 6109184-0 (Version None)
Quarter: 2009Q1

REPORT INFORMATION
  Report Type: 
  Country: None (occurrence: None)
  Receive Date: 20090306
  Receipt Date: 20090306
  Transmission Date: 20090719
  Serious: Yes (Death, Hospitalization)
  Sender: FDA-Public Use
  Company Number: None

PATIENT
  Sex: Female
  Weight: 28.4 kg

DRUGS (8)
  1. DOXORUBICIN HCL [Suspect]
     Dosage: 72 MG
  2. METHOTREXATE [Suspect]
     Dosage: 22000 MG
  3. BACTRIM [Concomitant]
  4. FLUCONAZOLE [Concomitant]
  5. GABAPENTIN [Concomitant]
  6. MAGNESIUM SULFATE [Concomitant]
  7. NEURONTIN [Concomitant]
  8. ZOFRAN [Concomitant]

REACTIONS (31)
  - ACIDOSIS [None]
  - ATELECTASIS [None]
  - BRADYCARDIA [None]
  - CARDIOGENIC SHOCK [None]
  - CARDIOMEGALY [None]
  - CARDIOMYOPATHY [None]
  - COAGULOPATHY [None]
  - COLITIS [None]
  - DECREASED APPETITE [None]
  - DEHYDRATION [None]
  - DILATATION VENTRICULAR [None]
  - FATIGUE [None]
  - FLUID INTAKE REDUCED [None]
  - GALLOP RHYTHM PRESENT [None]
  - HEART RATE INCREASED [None]
  - HYPOPERFUSION [None]
  - HYPOTENSION [None]
  - LEFT VENTRICULAR FAILURE [None]
  - LETHARGY [None]
  - LEUKOCYTOSIS [None]
  - LIVER INJURY [None]
  - MITRAL VALVE INCOMPETENCE [None]
  - PERIPHERAL COLDNESS [None]
  - PNEUMONIA [None]
  - PULMONARY HYPERTENSION [None]
  - TACHYCARDIA [None]
  - TRANSAMINASES INCREASED [None]
  - TRICUSPID VALVE INCOMPETENCE [None]
  - URINE OUTPUT DECREASED [None]
  - VIRAL INFECTION [None]
  - VOMITING [None]
